FAERS Safety Report 12447367 (Version 3)
Quarter: 2016Q4

REPORT INFORMATION
  Report Type: Spontaneous
  Country: US (occurrence: US)
  Receive Date: 20160608
  Receipt Date: 20161104
  Transmission Date: 20170207
  Serious: No
  Sender: FDA-Public Use
  Company Number: US-GLAXOSMITHKLINE-US2016078957

PATIENT
  Age: 47 Year
  Sex: Female

DRUGS (1)
  1. ABREVA [Suspect]
     Active Substance: DOCOSANOL
     Indication: ORAL HERPES
     Dosage: UNK
     Dates: start: 20160529, end: 20160530

REACTIONS (4)
  - Lip exfoliation [Recovered/Resolved]
  - Lip blister [Recovered/Resolved]
  - Scab [Recovered/Resolved]
  - Lip pain [Unknown]

NARRATIVE: CASE EVENT DATE: 20160530
